FAERS Safety Report 5655257-6 (Version None)
Quarter: 2008Q1

REPORT INFORMATION
  Report Type: 
  Country: None (occurrence: None)
  Receive Date: 20080307
  Receipt Date: 20080225
  Transmission Date: 20080703
  Serious: Yes (Other)
  Sender: FDA-Public Use
  Company Number: B0502156A

PATIENT
  Sex: Female

DRUGS (15)
  1. PAROXETINE HCL [Suspect]
     Indication: DRUG USE FOR UNKNOWN INDICATION
     Dates: start: 19980101
  2. LEVOTHYROXINE SODIUM [Concomitant]
     Indication: HYPOTHYROIDISM
     Dates: start: 19981201
  3. HRT [Concomitant]
     Indication: HYSTERECTOMY
     Dates: start: 19860601
  4. AMITRIPTYLINE HCL [Concomitant]
     Dosage: 25MG AT NIGHT
     Dates: start: 19970601
  5. XENICAL [Concomitant]
  6. FYBOGEL [Concomitant]
  7. CITALOPRAM HYDROBROMIDE [Concomitant]
  8. MIRTAZAPINE [Concomitant]
     Dosage: 15MG AT NIGHT
  9. LORATADINE [Concomitant]
  10. MULTI-VITAMIN [Concomitant]
  11. OMEPRAZOLE [Concomitant]
  12. EVOREL [Concomitant]
  13. ACETAMINOPHEN [Concomitant]
  14. BUPRENORPHINE HCL [Concomitant]
  15. FLUOXETINE [Concomitant]
     Dates: start: 20000101, end: 20000101

REACTIONS (16)
  - ABDOMINAL PAIN [None]
  - AFFECT LABILITY [None]
  - BACK PAIN [None]
  - BALANCE DISORDER [None]
  - CRYING [None]
  - DEPRESSED MOOD [None]
  - DEPRESSION [None]
  - DISTURBANCE IN ATTENTION [None]
  - DRUG WITHDRAWAL SYNDROME [None]
  - ENERGY INCREASED [None]
  - FATIGUE [None]
  - FEELING OF DESPAIR [None]
  - MEMORY IMPAIRMENT [None]
  - MUSCULOSKELETAL PAIN [None]
  - SUICIDAL IDEATION [None]
  - WEIGHT DECREASED [None]
